FAERS Safety Report 16348219 (Version 1)
Quarter: 2019Q2

REPORT INFORMATION
  Report Type: Spontaneous
  Country: US (occurrence: US)
  Receive Date: 20190523
  Receipt Date: 20190523
  Transmission Date: 20190711
  Serious: No
  Sender: FDA-Public Use
  Company Number: US-BAUSCH-BL-2019-014001

PATIENT
  Sex: Female

DRUGS (1)
  1. FLUOROURACIL 5% [Suspect]
     Active Substance: FLUOROURACIL
     Indication: PRECANCEROUS SKIN LESION
     Dosage: FLUOROURACIL ON HER FACE BUT IT WAS 1.5 INCHES AWAY FROM WHERE THE SURGERY WAS DONE
     Route: 061
     Dates: start: 2019

REACTIONS (3)
  - Impaired healing [Not Recovered/Not Resolved]
  - Hyperkeratosis [Not Recovered/Not Resolved]
  - Therapeutic product effect incomplete [Unknown]

NARRATIVE: CASE EVENT DATE: 2019
